FAERS Safety Report 8870493 (Version 3)
Quarter: 2012Q4

REPORT INFORMATION
  Report Type: 
  Country: FR (occurrence: FR)
  Receive Date: 20121029
  Receipt Date: 20121115
  Transmission Date: 20130627
  Serious: Yes (Hospitalization)
  Sender: FDA-Public Use
  Company Number: FR-BIOGENIDEC-2012BI047385

PATIENT
  Age: 45 Year
  Sex: Female

DRUGS (2)
  1. TYSABRI [Suspect]
     Indication: RELAPSING-REMITTING MULTIPLE SCLEROSIS
     Route: 042
     Dates: start: 20081016, end: 20120827
  2. DAIVOBET [Concomitant]
     Indication: PSORIASIS
     Route: 061
     Dates: start: 201201

REACTIONS (2)
  - B-cell lymphoma [Not Recovered/Not Resolved]
  - Oedema peripheral [Unknown]
